FAERS Safety Report 25789614 (Version 1)
Quarter: 2025Q3

REPORT INFORMATION
  Report Type: 
  Country: CN (occurrence: CN)
  Receive Date: 20250911
  Receipt Date: 20250911
  Transmission Date: 20251020
  Serious: Yes (Hospitalization, Other)
  Sender: JIANGSU HANSOH PHARMACEUTICAL GROUP CO., LTD.
  Company Number: CN-Hansoh-20252190016167

PATIENT
  Age: 38 Year
  Sex: Female
  Weight: 59.5 kg

DRUGS (2)
  1. GEMCITABINE HYDROCHLORIDE [Suspect]
     Active Substance: GEMCITABINE HYDROCHLORIDE
     Indication: Bile duct cancer
     Dosage: 1.7 G
     Route: 041
     Dates: start: 20250815, end: 20250815
  2. OXALIPLATIN [Suspect]
     Active Substance: OXALIPLATIN
     Indication: Bile duct cancer
     Dosage: 170 MG
     Route: 041
     Dates: start: 20250815, end: 20250815

REACTIONS (6)
  - Diarrhoea [Recovering/Resolving]
  - Vomiting [Recovering/Resolving]
  - Nausea [Unknown]
  - Decreased appetite [Unknown]
  - Listless [Unknown]
  - Off label use [Unknown]

NARRATIVE: CASE EVENT DATE: 20250818
